FAERS Safety Report 9766441 (Version 1)
Quarter: 2013Q4

REPORT INFORMATION
  Report Type: Spontaneous
  Country: US (occurrence: US)
  Receive Date: 20131217
  Receipt Date: 20131217
  Transmission Date: 20140711
  Serious: No
  Sender: FDA-Public Use
  Company Number: US-GLAXOSMITHKLINE-A1028035A

PATIENT
  Age: 57 Year
  Sex: Female

DRUGS (1)
  1. VOTRIENT [Suspect]
     Indication: GENITAL CANCER MALE
     Dosage: 400MG PER DAY
     Route: 065
     Dates: end: 20130614

REACTIONS (1)
  - Treatment noncompliance [Unknown]
